FAERS Safety Report 10261771 (Version 5)
Quarter: 2014Q3

REPORT INFORMATION
  Report Type: Spontaneous
  Country: JP (occurrence: JP)
  Receive Date: 20140626
  Receipt Date: 20140909
  Transmission Date: 20150326
  Serious: Yes (Hospitalization, Other)
  Sender: FDA-Public Use
  Company Number: JP-JNJFOC-20140615049

PATIENT
  Age: 54 Year
  Sex: Female

DRUGS (5)
  1. METHOTREXATE [Suspect]
     Active Substance: METHOTREXATE
     Indication: RHEUMATOID ARTHRITIS
     Route: 048
  2. REMICADE [Suspect]
     Active Substance: INFLIXIMAB
     Indication: RHEUMATOID ARTHRITIS
     Route: 042
  3. METHOTREXATE [Suspect]
     Active Substance: METHOTREXATE
     Indication: RHEUMATOID ARTHRITIS
     Dosage: 08 MG OR LOWER
     Route: 048
     Dates: start: 20030106
  4. REMICADE [Suspect]
     Active Substance: INFLIXIMAB
     Indication: RHEUMATOID ARTHRITIS
     Dosage: 26TH DOSE
     Route: 042
     Dates: start: 20081204, end: 20081204
  5. METHOTREXATE [Suspect]
     Active Substance: METHOTREXATE
     Indication: RHEUMATOID ARTHRITIS
     Route: 048
     Dates: start: 201211

REACTIONS (9)
  - Metastases to lymph nodes [Recovered/Resolved]
  - Papillary thyroid cancer [Recovered/Resolved]
  - Anaemia [Unknown]
  - Diverticulum intestinal [Unknown]
  - Polyp [Unknown]
  - Tetany [Unknown]
  - Chest X-ray abnormal [Unknown]
  - Chronic gastritis [Unknown]
  - Duodenal ulcer [Recovered/Resolved]

NARRATIVE: CASE EVENT DATE: 20120224
